FAERS Safety Report 7945547-6 (Version None)
Quarter: 2011Q4

REPORT INFORMATION
  Report Type: 
  Country: None (occurrence: None)
  Receive Date: 20111125
  Receipt Date: 20111115
  Transmission Date: 20120403
  Serious: Yes (Hospitalization, Other)
  Sender: FDA-Public Use
  Company Number: 1000025710

PATIENT
  Age: 74 Year
  Sex: Male
  Weight: 72 kg

DRUGS (8)
  1. CITALOPRAM HYDROBROMIDE [Suspect]
     Indication: DEPRESSION
     Dosage: 20 MG (20 MG, 1 IN 1 D),ORAL
     Route: 048
     Dates: start: 20080301
  2. PRITOR (LACIDIPINE) (TABLETS) (LACIDIPINE) [Concomitant]
  3. BLOXIN (METOPROLOL TARTRATE) (TABLETS) (METOPROLOL TARTRATE) [Concomitant]
  4. PROCORALAN (IVABRADINE) HYDROCHLORIDE) (TABLETS) (IVABRADINE HYDROCHLO [Concomitant]
  5. DIUVER (TORASEMIDE) TABLETS) (TORASEMIDE) [Concomitant]
  6. EMSELEX (DARIFENACIN HYDROBROMIDE) (TABLETS) (DARIFENACIN HYDROBROMIDE [Concomitant]
  7. ASPIRIN (ACETYLSALICYCLIC ACID (TABLETS0 (ACETYLSALICYCLIC ACID) [Concomitant]
  8. METHOTREXATE (METHOTREXATE) (TABLETS) (METHOTREXATE) [Concomitant]

REACTIONS (5)
  - ROAD TRAFFIC ACCIDENT [None]
  - FRACTURE [None]
  - SOMNAMBULISM [None]
  - CONCUSSION [None]
  - PATELLA FRACTURE [None]
